FAERS Safety Report 6854369-9 (Version None)
Quarter: 2010Q3

REPORT INFORMATION
  Report Type: 
  Country: None (occurrence: None)
  Receive Date: 20100717
  Receipt Date: 20080103
  Transmission Date: 20110219
  Serious: No
  Sender: FDA-Public Use
  Company Number: US-PFIZER INC-2008001547

PATIENT
  Sex: Female
  Weight: 63.6 kg

DRUGS (4)
  1. CHANTIX [Suspect]
     Indication: SMOKING CESSATION THERAPY
     Dates: start: 20071222, end: 20080103
  2. ALEVE (CAPLET) [Concomitant]
  3. ESTROVEN [Concomitant]
  4. XANAX [Concomitant]

REACTIONS (8)
  - BLOOD PRESSURE INCREASED [None]
  - BRONCHITIS [None]
  - COUGH [None]
  - INFLUENZA [None]
  - MYALGIA [None]
  - NASOPHARYNGITIS [None]
  - PALPITATIONS [None]
  - PYREXIA [None]
